FAERS Safety Report 7022318-9 (Version None)
Quarter: 2010Q3

REPORT INFORMATION
  Report Type: 
  Country: None (occurrence: None)
  Receive Date: 20100930
  Receipt Date: 20100924
  Transmission Date: 20110219
  Serious: Yes (Hospitalization)
  Sender: FDA-Public Use
  Company Number: FR-SANOFI-AVENTIS-2010SA057419

PATIENT
  Age: 89 Year
  Sex: Female

DRUGS (7)
  1. ZOLPIDEM TARTRATE [Suspect]
     Indication: INSOMNIA
     Route: 048
     Dates: start: 20091012, end: 20091023
  2. DOLIPRANE [Suspect]
     Indication: PAIN
     Route: 048
     Dates: start: 20091008, end: 20091026
  3. DABIGATRAN ETEXILATE [Suspect]
     Route: 048
     Dates: start: 20091008, end: 20091027
  4. LEVOTHYROXINE SODIUM [Suspect]
     Indication: IRON DEFICIENCY
     Route: 048
     Dates: start: 20091010, end: 20091026
  5. FERROUS SULFATE [Concomitant]
     Indication: FOLATE DEFICIENCY
     Dates: start: 20091010
  6. PROTON PUMP INHIBITORS [Concomitant]
  7. SPECIAFOLDINE [Concomitant]
     Dates: start: 20091010

REACTIONS (1)
  - NEUTROPENIA [None]
